FAERS Safety Report 19392047 (Version 1)
Quarter: 2021Q2

REPORT INFORMATION
  Report Type: Spontaneous
  Country: GR (occurrence: GR)
  Receive Date: 20210608
  Receipt Date: 20210608
  Transmission Date: 20210717
  Serious: Yes (Other)
  Sender: FDA-Public Use
  Company Number: GR-PFIZER INC-2021604893

PATIENT
  Age: 58 Year
  Sex: Female

DRUGS (2)
  1. CYTOTEC [Suspect]
     Active Substance: MISOPROSTOL
     Indication: GASTRITIS EROSIVE
     Dosage: 800 MG (4X200MG), DAILY
  2. CYTOTEC [Suspect]
     Active Substance: MISOPROSTOL
     Dosage: 400 MG (2X200 MG), DAILY

REACTIONS (5)
  - Off label use [Unknown]
  - Incorrect product administration duration [Unknown]
  - Melaena [Unknown]
  - Product use in unapproved indication [Unknown]
  - Drug effective for unapproved indication [Unknown]
